FAERS Safety Report 18198265 (Version 1)
Quarter: 2020Q3

REPORT INFORMATION
  Report Type: Spontaneous
  Country: US (occurrence: US)
  Receive Date: 20200826
  Receipt Date: 20200826
  Transmission Date: 20201103
  Serious: No
  Sender: FDA-Public Use
  Company Number: US-LUPIN PHARMACEUTICALS INC.-2020-01037

PATIENT
  Age: 58 Year
  Sex: Female
  Weight: 77 kg

DRUGS (4)
  1. MEMANTINE HYDROCHLORIDE. [Suspect]
     Active Substance: MEMANTINE HYDROCHLORIDE
     Dosage: UNK (BREAKS THE TABLET)
     Route: 048
  2. MEMANTINE HYDROCHLORIDE. [Suspect]
     Active Substance: MEMANTINE HYDROCHLORIDE
     Indication: MIGRAINE
     Dosage: 10 MILLIGRAM, QD
     Route: 048
     Dates: end: 20200214
  3. KLONOPIN [Concomitant]
     Active Substance: CLONAZEPAM
     Indication: PRODUCT USED FOR UNKNOWN INDICATION
     Dosage: UNK
     Route: 065
  4. MEMANTINE HYDROCHLORIDE. [Suspect]
     Active Substance: MEMANTINE HYDROCHLORIDE
     Dosage: 10 MILLIGRAM, QD
     Route: 048
     Dates: end: 20200214

REACTIONS (3)
  - Product use in unapproved indication [Unknown]
  - Dizziness [Recovered/Resolved]
  - Wrong technique in product usage process [Unknown]

NARRATIVE: CASE EVENT DATE: 20200214
